FAERS Safety Report 13817482 (Version 6)
Quarter: 2019Q1

REPORT INFORMATION
  Report Type: Spontaneous
  Country: VE (occurrence: VE)
  Receive Date: 20170731
  Receipt Date: 20190312
  Transmission Date: 20190417
  Serious: Yes (Life-Threatening, Hospitalization, Other)
  Sender: FDA-Public Use
  Company Number: VE-PFIZER INC-2017329987

PATIENT
  Age: 7 Year
  Sex: Male

DRUGS (1)
  1. METHOTREXATE. [Suspect]
     Active Substance: METHOTREXATE
     Indication: ACUTE LYMPHOCYTIC LEUKAEMIA RECURRENT
     Dosage: 4 GRAM PER SQUARE METRE
     Route: 058

REACTIONS (3)
  - Sepsis [Recovering/Resolving]
  - Bacteraemia [Recovering/Resolving]
  - Pancytopenia [Unknown]
